FAERS Safety Report 4509086-7 (Version None)
Quarter: 2004Q4

REPORT INFORMATION
  Report Type: 
  Country: None (occurrence: None)
  Receive Date: 20041025
  Receipt Date: 20040723
  Transmission Date: 20050328
  Serious: Yes (Other)
  Sender: FDA-Public Use
  Company Number: US-JNJFOC-20040706462

PATIENT
  Age: 57 Year
  Sex: Female
  Weight: 71.6683 kg

DRUGS (13)
  1. INFLIXIMAB (INFLIXIMAB, RECOMBINANT) LYOPHILIZED POWDER [Suspect]
     Indication: RHEUMATOID ARTHRITIS
     Dosage: 400 MG, 1 IN 6 HOUR, INTRAVENOUS
     Route: 042
     Dates: start: 20011003
  2. METHOTREXATE [Concomitant]
  3. BENADRYL [Concomitant]
  4. PLAQUENIL (HYDROXYCHKLOROQUINE PHOSPHATE) [Concomitant]
  5. DICLOFENAC (DICLOFENAC) [Concomitant]
  6. FOLIC ACID [Concomitant]
  7. ACTIVELA (OESTRANORM) [Concomitant]
  8. ZESTORETIC [Concomitant]
  9. ULTRACET (HYDROTALCITE) [Concomitant]
  10. CALCIUM D (CALCIUM WITH VITAMIN D) [Concomitant]
  11. VITAMIN C (ASCORBIC ACID) [Concomitant]
  12. VITAMIN E [Concomitant]
  13. MULTIVITAMIN (MULTIVITAMINS) [Concomitant]

REACTIONS (1)
  - SINUSITIS [None]
